FAERS Safety Report 6133242-8 (Version None)
Quarter: 2009Q1

REPORT INFORMATION
  Report Type: 
  Country: None (occurrence: None)
  Receive Date: 20090326
  Receipt Date: 20090316
  Transmission Date: 20090719
  Serious: Yes (Death)
  Sender: FDA-Public Use
  Company Number: US-SP-2009-01125

PATIENT
  Age: 87 Year
  Sex: Female

DRUGS (2)
  1. BOTULISM AB [Suspect]
     Indication: BOTULISM
     Dosage: 1 VIAL GIVEN
     Route: 065
     Dates: start: 20031014
  2. BOTULISM ANTITOXIN ABE [Suspect]
     Indication: BOTULISM
     Dosage: 1/2 VIAL GIVEN
     Route: 065
     Dates: start: 20031014

REACTIONS (1)
  - DEATH [None]
